FAERS Safety Report 10309611 (Version 2)
Quarter: 2014Q3

REPORT INFORMATION
  Report Type: Spontaneous
  Country: NO (occurrence: NO)
  Receive Date: 20140717
  Receipt Date: 20140728
  Transmission Date: 20150326
  Serious: Yes (Other)
  Sender: FDA-Public Use
  Company Number: NO-AMGEN-NORSP2014052106

PATIENT
  Age: 56 Year
  Sex: Female
  Weight: 49.88 kg

DRUGS (4)
  1. EPIRUBICIN [Concomitant]
     Active Substance: EPIRUBICIN
     Dosage: 100 MG X 6
  2. CYCLOPHOSPHAMIDE. [Concomitant]
     Active Substance: CYCLOPHOSPHAMIDE
     Dosage: 440 MG X 6
  3. XGEVA [Suspect]
     Active Substance: DENOSUMAB
     Indication: METASTASES TO BONE
     Dosage: 120 MG, Q4WK
     Route: 058
     Dates: start: 20140623
  4. 5 FLUOROURACIL                     /00098801/ [Concomitant]
     Active Substance: FLUOROURACIL
     Dosage: 440 MG X 6

REACTIONS (14)
  - Asthenia [Recovered/Resolved]
  - Swollen tongue [Recovered/Resolved]
  - Hypocalcaemia [Unknown]
  - Palliative care [Unknown]
  - Diarrhoea [Recovered/Resolved]
  - Hyperhidrosis [Unknown]
  - Feeling cold [Unknown]
  - Mouth swelling [Recovered/Resolved]
  - Dizziness [Unknown]
  - Herpes zoster [Recovered/Resolved]
  - Poor peripheral circulation [Unknown]
  - General physical health deterioration [Recovered/Resolved]
  - Malaise [Recovered/Resolved]
  - Hot flush [Unknown]

NARRATIVE: CASE EVENT DATE: 20140623
